FAERS Safety Report 11272552 (Version 2)
Quarter: 2015Q4

REPORT INFORMATION
  Report Type: Spontaneous
  Country: US (occurrence: US)
  Receive Date: 20150715
  Receipt Date: 20151215
  Transmission Date: 20160304
  Serious: Yes (Other)
  Sender: FDA-Public Use
  Company Number: US-GSKJP-US2014GSK054547AA

PATIENT
  Age: 49 Year
  Sex: Male

DRUGS (5)
  1. VERAMYST [Suspect]
     Active Substance: FLUTICASONE FUROATE
     Indication: CHRONIC SINUSITIS
     Dosage: 27.5 ?G, U
     Route: 065
  2. FLONASE [Suspect]
     Active Substance: FLUTICASONE PROPIONATE
     Indication: CHRONIC SINUSITIS
     Dosage: 50 ?G, U
     Dates: start: 20091119
  3. CORTISONE [Concomitant]
     Active Substance: CORTISONE\HYDROCORTISONE
  4. VENTOLIN HFA [Suspect]
     Active Substance: ALBUTEROL SULFATE
     Indication: CHRONIC OBSTRUCTIVE PULMONARY DISEASE
     Dosage: 90 ?G, U
     Route: 065
  5. ADVAIR HFA [Suspect]
     Active Substance: FLUTICASONE PROPIONATE\SALMETEROL XINAFOATE
     Indication: CHRONIC OBSTRUCTIVE PULMONARY DISEASE
     Dosage: UNK, U
     Route: 065

REACTIONS (3)
  - Ocular discomfort [Unknown]
  - Cataract [Unknown]
  - Cataract operation [Unknown]

NARRATIVE: CASE EVENT DATE: 201410
